FAERS Safety Report 10500958 (Version 1)
Quarter: 2014Q4

REPORT INFORMATION
  Report Type: Spontaneous
  Country: US (occurrence: None)
  Receive Date: 20141006
  Receipt Date: 20141006
  Transmission Date: 20150528
  Serious: Yes (Other)
  Sender: FDA-Public Use
  Company Number: None

PATIENT
  Age: 73 Year
  Sex: Male

DRUGS (3)
  1. ALPHAGAN P [Concomitant]
     Active Substance: BRIMONIDINE TARTRATE
  2. LATANOPROST. [Suspect]
     Active Substance: LATANOPROST
     Indication: INTRAOCULAR PRESSURE INCREASED
     Dosage: 1 DROP IN BOTH EYE, QHS/BEDTIME, OPHTHALMIC?
     Route: 047
     Dates: start: 20141003, end: 20141003
  3. TRIAMTERNE/HCTZ [Concomitant]

REACTIONS (6)
  - Eye irritation [None]
  - Eye pain [None]
  - Insomnia [None]
  - Product quality issue [None]
  - Ocular hyperaemia [None]
  - No reaction on previous exposure to drug [None]

NARRATIVE: CASE EVENT DATE: 20141003
